FAERS Safety Report 6150374-9 (Version None)
Quarter: 2009Q2

REPORT INFORMATION
  Report Type: 
  Country: None (occurrence: None)
  Receive Date: 20090408
  Receipt Date: 20090408
  Transmission Date: 20091009
  Serious: Yes (Hospitalization)
  Sender: FDA-Public Use
  Company Number: None

PATIENT
  Age: 63 Year
  Sex: Male
  Weight: 86.4 kg

DRUGS (1)
  1. EPINEPHRINE [Suspect]
     Indication: CONTRAST MEDIA ALLERGY
     Dosage: 0.3 MG ONCE IM
     Route: 030
     Dates: start: 20081121, end: 20081121

REACTIONS (3)
  - AGITATION [None]
  - HEADACHE [None]
  - VENTRICULAR TACHYCARDIA [None]
